FAERS Safety Report 15841700 (Version 2)
Quarter: 2019Q3

REPORT INFORMATION
  Report Type: Spontaneous
  Country: CO (occurrence: CO)
  Receive Date: 20190118
  Receipt Date: 20190709
  Transmission Date: 20191004
  Serious: Yes (Hospitalization)
  Sender: FDA-Public Use
  Company Number: CO-ACTELION-A-CH2018-176296

PATIENT
  Age: 25 Year
  Sex: Female
  Weight: 52 kg

DRUGS (3)
  1. TREPROSTINIL. [Suspect]
     Active Substance: TREPROSTINIL
     Indication: PRODUCT USED FOR UNKNOWN INDICATION
     Route: 042
  2. OPSUMIT [Suspect]
     Active Substance: MACITENTAN
     Indication: PULMONARY ARTERIAL HYPERTENSION
     Dosage: 10 MG, QD
     Route: 048
     Dates: start: 20180710, end: 20181009
  3. OPSUMIT [Suspect]
     Active Substance: MACITENTAN
     Dosage: 10 MG, QD
     Route: 048
     Dates: start: 20181024

REACTIONS (13)
  - Choking sensation [Recovering/Resolving]
  - Pain in extremity [Not Recovered/Not Resolved]
  - Cough [Unknown]
  - Abdominal distension [Recovering/Resolving]
  - Headache [Unknown]
  - Catheter site pain [Recovering/Resolving]
  - Device leakage [Unknown]
  - Chest pain [Unknown]
  - Back pain [Unknown]
  - Malaise [Unknown]
  - Peripheral swelling [Recovering/Resolving]
  - Nasopharyngitis [Unknown]
  - Catheter site erythema [Recovering/Resolving]

NARRATIVE: CASE EVENT DATE: 20180721
